FAERS Safety Report 8213710-5 (Version None)
Quarter: 2012Q1

REPORT INFORMATION
  Report Type: 
  Country: None (occurrence: None)
  Receive Date: 20120315
  Receipt Date: 20120307
  Transmission Date: 20120608
  Serious: Yes (Hospitalization)
  Sender: FDA-Public Use
  Company Number: US-ASTRAZENECA-2012SE16146

PATIENT
  Age: 55 Year
  Sex: Male

DRUGS (5)
  1. GEODON [Concomitant]
  2. DEPAKOTE [Concomitant]
  3. SIMCOR [Concomitant]
     Dosage: 500/20 MG
  4. CLONAZEPAM [Concomitant]
  5. SEROQUEL [Suspect]
     Route: 048

REACTIONS (2)
  - MENTAL DISORDER [None]
  - DRUG DOSE OMISSION [None]
